FAERS Safety Report 4276223-1 (Version None)
Quarter: 2004Q1

REPORT INFORMATION
  Report Type: 
  Country: None (occurrence: None)
  Receive Date: 20040121
  Receipt Date: 20030625
  Transmission Date: 20041129
  Serious: No
  Sender: FDA-Public Use
  Company Number: US-GLAXOSMITHKLINE-A0413818A

PATIENT
  Age: 44 Year
  Sex: Male

DRUGS (4)
  1. ZIAGEN [Suspect]
     Indication: HIV INFECTION
     Dosage: 300MG TWICE PER DAY
     Route: 048
  2. ZERIT [Concomitant]
     Indication: HIV INFECTION
  3. VIRACEPT [Concomitant]
     Indication: HIV INFECTION
  4. FISH OIL [Concomitant]
     Dates: start: 20030617

REACTIONS (3)
  - ABDOMINAL PAIN UPPER [None]
  - DIARRHOEA [None]
  - HEADACHE [None]
